FAERS Safety Report 7756987-2 (Version None)
Quarter: 2011Q3

REPORT INFORMATION
  Report Type: 
  Country: None (occurrence: None)
  Receive Date: 20110916
  Receipt Date: 20110916
  Transmission Date: 20111222
  Serious: No
  Sender: FDA-Public Use
  Company Number: None

PATIENT
  Sex: Female
  Weight: 682.2 kg

DRUGS (1)
  1. FLEXERIL [Suspect]
     Indication: BACK PAIN
     Dosage: 10MG
     Route: 048
     Dates: start: 20110412, end: 20110621

REACTIONS (3)
  - TRISMUS [None]
  - ERYTHEMA [None]
  - THROAT TIGHTNESS [None]
